FAERS Safety Report 4303431-3 (Version None)
Quarter: 2004Q1

REPORT INFORMATION
  Report Type: 
  Country: None (occurrence: None)
  Receive Date: 20040223
  Receipt Date: 20030523
  Transmission Date: 20041129
  Serious: Yes (Hospitalization, Other)
  Sender: FDA-Public Use
  Company Number: KII-2003-0007053

PATIENT
  Age: 36 Year
  Sex: Female

DRUGS (5)
  1. MS CONTIN [Suspect]
     Indication: PAIN
     Dosage: ORAL
     Route: 048
  2. NEURONTIN [Suspect]
     Dosage: ORAL
     Route: 048
  3. AMITRIPTYLINE HCL [Suspect]
     Dosage: ORAL
     Route: 048
  4. PHENCYCLIDINE (PHENCYCLIDINE) [Suspect]
  5. ALCOHOL (ETHANOL) [Suspect]

REACTIONS (16)
  - ABNORMAL BEHAVIOUR [None]
  - BLOOD ALCOHOL INCREASED [None]
  - BLOOD CALCIUM DECREASED [None]
  - BODY TEMPERATURE DECREASED [None]
  - BOWEL SOUNDS ABNORMAL [None]
  - COMA [None]
  - CONFUSIONAL STATE [None]
  - DEPRESSED MOOD [None]
  - HYPOTENSION [None]
  - MULTIPLE DRUG OVERDOSE [None]
  - MYDRIASIS [None]
  - PUPILLARY REFLEX IMPAIRED [None]
  - RESPIRATORY DEPRESSION [None]
  - SUICIDAL IDEATION [None]
  - TACHYCARDIA [None]
  - URINE OUTPUT INCREASED [None]
